FAERS Safety Report 23965138 (Version 1)
Quarter: 2024Q2

REPORT INFORMATION
  Report Type: Spontaneous
  Country: FR (occurrence: FR)
  Receive Date: 20240612
  Receipt Date: 20240612
  Transmission Date: 20240716
  Serious: Yes (Hospitalization)
  Sender: FDA-Public Use
  Company Number: FR-NOVITIUMPHARMA-2024FRNVP01020

PATIENT
  Age: 14 Year
  Sex: Male

DRUGS (4)
  1. SULFAMETHOXAZOLE\TRIMETHOPRIM [Suspect]
     Active Substance: SULFAMETHOXAZOLE\TRIMETHOPRIM
     Indication: Antifungal prophylaxis
  2. ITRACONAZOLE [Concomitant]
     Active Substance: ITRACONAZOLE
     Indication: Antifungal prophylaxis
  3. VORICONAZOLE [Concomitant]
     Active Substance: VORICONAZOLE
     Indication: Bronchopulmonary aspergillosis
     Dosage: MG/KG PER DAY
  4. CASPOFUNGIN [Concomitant]
     Active Substance: CASPOFUNGIN
     Indication: Bronchopulmonary aspergillosis
     Dosage: MG/M2 PER DAY

REACTIONS (1)
  - Drug resistance [Unknown]
